FAERS Safety Report 8199470-5 (Version None)
Quarter: 2012Q1

REPORT INFORMATION
  Report Type: 
  Country: None (occurrence: None)
  Receive Date: 20120309
  Receipt Date: 20120305
  Transmission Date: 20120608
  Serious: Yes (Life-Threatening)
  Sender: FDA-Public Use
  Company Number: CN-ASTRAZENECA-2012SE15322

PATIENT

DRUGS (4)
  1. ATROPINE [Suspect]
     Indication: ANAESTHESIA
     Route: 030
  2. PROPOFOL [Suspect]
     Indication: ANAESTHESIA
     Dosage: 1-1.5 MG/KG
     Route: 042
  3. DEXMEDETOMODINE HYDROCHLORIDE [Suspect]
     Indication: ANAESTHESIA
     Route: 042
  4. PROPOFOL [Suspect]
     Dosage: 4-6 MG/KG/H
     Route: 042

REACTIONS (1)
  - RESPIRATORY ARREST [None]
